FAERS Safety Report 25050462 (Version 1)
Quarter: 2025Q1

REPORT INFORMATION
  Report Type: Spontaneous
  Country: FR (occurrence: FR)
  Receive Date: 20250307
  Receipt Date: 20250307
  Transmission Date: 20250409
  Serious: Yes (Hospitalization, Other)
  Sender: AUROBINDO
  Company Number: FR-AFSSAPS-NY2025000218

PATIENT
  Age: 72 Year
  Sex: Female
  Weight: 73 kg

DRUGS (12)
  1. CARBOPLATIN [Suspect]
     Active Substance: CARBOPLATIN
     Indication: Lung carcinoma cell type unspecified stage IV
     Route: 042
     Dates: start: 20240308, end: 20240510
  2. CARBOPLATIN [Suspect]
     Active Substance: CARBOPLATIN
     Route: 042
     Dates: start: 202406, end: 20240719
  3. IMFINZI [Suspect]
     Active Substance: DURVALUMAB
     Indication: Lung carcinoma cell type unspecified stage IV
     Route: 042
     Dates: start: 20240308, end: 20240510
  4. IMFINZI [Suspect]
     Active Substance: DURVALUMAB
     Route: 042
     Dates: start: 20240719, end: 20241008
  5. ETOPOSIDE [Suspect]
     Active Substance: ETOPOSIDE
     Indication: Lung carcinoma cell type unspecified stage IV
     Route: 042
     Dates: start: 20240308, end: 20240510
  6. ETOPOSIDE [Suspect]
     Active Substance: ETOPOSIDE
     Route: 042
     Dates: start: 202406, end: 20240719
  7. FLUTICASONE FUROATE\VILANTEROL TRIFENATATE [Concomitant]
     Active Substance: FLUTICASONE FUROATE\VILANTEROL TRIFENATATE
     Indication: Lung carcinoma cell type unspecified stage IV
     Dosage: 1 DOSAGE FORM, ONCE A DAY
  8. POTASSIUM CHLORIDE [Concomitant]
     Active Substance: POTASSIUM CHLORIDE
     Indication: Hypokalaemia
     Dosage: 3 DOSAGE FORM, 3 TIMES A DAY
     Route: 048
  9. INNOHEP [Concomitant]
     Active Substance: TINZAPARIN SODIUM
     Indication: Deep vein thrombosis
     Dosage: 1400 INTERNATIONAL UNIT, ONCE A DAY
     Route: 058
  10. PERINDOPRIL [Concomitant]
     Active Substance: PERINDOPRIL
     Indication: Hypertension
     Dosage: 10 MILLIGRAM, ONCE A DAY
     Route: 048
  11. INDAPAMIDE [Concomitant]
     Active Substance: INDAPAMIDE
     Indication: Hypertension
     Dosage: 12.5 MILLIGRAM, ONCE A DAY
     Route: 048
  12. SKENAN [Concomitant]
     Active Substance: MORPHINE SULFATE
     Indication: Pain
     Dosage: 10 MILLIGRAM, TWO TIMES A DAY
     Route: 048

REACTIONS (1)
  - Tubulointerstitial nephritis [Recovering/Resolving]

NARRATIVE: CASE EVENT DATE: 20240416
